FAERS Safety Report 21756301 (Version 3)
Quarter: 2023Q1

REPORT INFORMATION
  Report Type: Spontaneous
  Country: IT (occurrence: IT)
  Receive Date: 20221220
  Receipt Date: 20230327
  Transmission Date: 20230417
  Serious: Yes (Death, Hospitalization, Other)
  Sender: FDA-Public Use
  Company Number: IT-PHARMAMAR-2022PM000481

PATIENT
  Age: 50 Year
  Sex: Female

DRUGS (3)
  1. ZEPZELCA [Suspect]
     Active Substance: LURBINECTEDIN
     Indication: Product used for unknown indication
     Dosage: 2.6 MILLIGRAM/SQ. METER
     Route: 042
     Dates: start: 20220913, end: 2022
  2. ZEPZELCA [Suspect]
     Active Substance: LURBINECTEDIN
     Dosage: 2.6 MILLIGRAM/SQ. METER
     Route: 042
     Dates: start: 20221007
  3. ZEPZELCA [Suspect]
     Active Substance: LURBINECTEDIN
     Dosage: 2.6 MILLIGRAM/SQ. METER
     Route: 042
     Dates: start: 20221028

REACTIONS (3)
  - Pulmonary oedema [Fatal]
  - Transaminases increased [Recovering/Resolving]
  - Spinal fracture [Not Recovered/Not Resolved]

NARRATIVE: CASE EVENT DATE: 20220920
